FAERS Safety Report 4971044-6 (Version None)
Quarter: 2006Q2

REPORT INFORMATION
  Report Type: 
  Country: None (occurrence: None)
  Receive Date: 20060412
  Receipt Date: 20060310
  Transmission Date: 20061013
  Serious: Yes (Hospitalization)
  Sender: FDA-Public Use
  Company Number: JP-JNJFOC-20060303361

PATIENT
  Age: 60 Year
  Sex: Male

DRUGS (1)
  1. RISPERDAL [Suspect]
     Indication: DRUG USE FOR UNKNOWN INDICATION
     Dosage: 1-2 MG DAILY
     Route: 048

REACTIONS (3)
  - AZOTAEMIA [None]
  - DRUG WITHDRAWAL SYNDROME [None]
  - DYSKINESIA [None]
